APPROVED DRUG PRODUCT: MINOCYCLINE HYDROCHLORIDE
Active Ingredient: MINOCYCLINE HYDROCHLORIDE
Strength: EQ 90MG BASE
Dosage Form/Route: TABLET, EXTENDED RELEASE;ORAL
Application: A065485 | Product #002
Applicant: BARR LABORATORIES INC
Approved: Mar 17, 2009 | RLD: No | RS: No | Type: DISCN